FAERS Safety Report 9856011 (Version 2)
Quarter: 2014Q3

REPORT INFORMATION
  Report Type: Report from Study
  Country: US (occurrence: US)
  Receive Date: 20140130
  Receipt Date: 20140807
  Transmission Date: 20150326
  Serious: Yes (Hospitalization)
  Sender: FDA-Public Use
  Company Number: US-PFIZER INC-2014023183

PATIENT
  Age: 59 Year
  Sex: Male
  Weight: 63.2 kg

DRUGS (11)
  1. VANCOMYCIN HCL [Suspect]
     Active Substance: VANCOMYCIN HYDROCHLORIDE
     Dosage: UNK
     Dates: start: 20140106
  2. BIOTENE MOUTHWASH [Concomitant]
     Dosage: AS DIRECTED
     Dates: start: 20121116
  3. GABAPENTIN. [Concomitant]
     Active Substance: GABAPENTIN
     Dosage: 600 MG, 2X/DAY
     Route: 048
     Dates: start: 20131031
  4. MYCELEX TROCHE [Concomitant]
     Dosage: 10 MG, 5X DAY FOR 14 DAYS
     Route: 048
     Dates: start: 20130828
  5. ACYCLOVIR. [Concomitant]
     Active Substance: ACYCLOVIR
     Dosage: 400 MG, 2X/DAY
     Route: 048
     Dates: start: 20131209
  6. POTASSIUM CHLORIDE. [Concomitant]
     Active Substance: POTASSIUM CHLORIDE
     Dosage: 20 MEQ, 2X/DAY
     Route: 048
     Dates: start: 20131231
  7. INOTUZUMAB OZOGAMICIN [Suspect]
     Active Substance: INOTUZUMAB OZOGAMICIN
     Indication: ACUTE LYMPHOCYTIC LEUKAEMIA
     Dosage: 0.5 MG/M2, CYCLIC
     Route: 042
     Dates: start: 20131230, end: 20140210
  8. MG PLUS PROTEIN [Concomitant]
     Dosage: 266 MG, 2X/DAY
     Route: 048
     Dates: start: 20131121
  9. POSACONAZOLE [Concomitant]
     Active Substance: POSACONAZOLE
     Dosage: 20 MG, 2X/DAY; HOLD
     Route: 048
     Dates: start: 20140106, end: 20140106
  10. ATIVAN [Concomitant]
     Active Substance: LORAZEPAM
     Dosage: 1 MG, AS NEEDED
     Route: 048
  11. LOPRESSOR [Concomitant]
     Active Substance: METOPROLOL TARTRATE
     Dosage: 50 MG, 2X/DAY
     Route: 048
     Dates: end: 20140106

REACTIONS (1)
  - Febrile neutropenia [Recovered/Resolved with Sequelae]

NARRATIVE: CASE EVENT DATE: 20140118
